FAERS Safety Report 23923417 (Version 1)
Quarter: 2024Q2

REPORT INFORMATION
  Report Type: Spontaneous
  Country: ES (occurrence: ES)
  Receive Date: 20240531
  Receipt Date: 20240531
  Transmission Date: 20240716
  Serious: Yes (Other)
  Sender: FDA-Public Use
  Company Number: ES-002147023-NVSC2022ES125284

PATIENT
  Age: 26 Year
  Sex: Female
  Weight: 76.3 kg

DRUGS (4)
  1. AZITHROMYCIN [Suspect]
     Active Substance: AZITHROMYCIN
     Indication: Pharyngitis
     Dosage: 500 MG, QD
     Route: 048
  2. VORETIGENE NEPARVOVEC [Suspect]
     Active Substance: VORETIGENE NEPARVOVEC
     Indication: RPE65 gene mutation
     Dosage: 300 UL, ONCE/SINGLE (LEFT EYE)
     Dates: start: 20220210, end: 20220210
  3. VORETIGENE NEPARVOVEC [Suspect]
     Active Substance: VORETIGENE NEPARVOVEC
     Indication: Retinal dystrophy
     Dosage: 300 UL, ONCE/SINGLE (RIGHT EYE)
     Dates: start: 20220222, end: 20220222
  4. METHYLPREDNISOLONE [Concomitant]
     Active Substance: METHYLPREDNISOLONE
     Indication: Product used for unknown indication
     Dosage: 0.4 ML (AT THE END OF SURGERY)
     Route: 057

REACTIONS (10)
  - Retinal degeneration [Not Recovered/Not Resolved]
  - Retinal degeneration [Not Recovered/Not Resolved]
  - Intraocular pressure increased [Recovered/Resolved]
  - Pharyngitis [Recovered/Resolved]
  - Migraine [Recovered/Resolved]
  - Chronic spontaneous urticaria [Not Recovered/Not Resolved]
  - Urticaria [Recovered/Resolved]
  - Urticaria [Recovered/Resolved]
  - Urticaria [Recovered/Resolved]
  - Urticaria [Recovered/Resolved]

NARRATIVE: CASE EVENT DATE: 20220315
